FAERS Safety Report 14618275 (Version 1)
Quarter: 2018Q1

REPORT INFORMATION
  Report Type: Spontaneous
  Country: NL (occurrence: NL)
  Receive Date: 20180309
  Receipt Date: 20180309
  Transmission Date: 20180509
  Serious: Yes (Death)
  Sender: FDA-Public Use
  Company Number: NL-ASTRAZENECA-2018SE28699

PATIENT
  Sex: Female

DRUGS (2)
  1. SETRALIN [Suspect]
     Active Substance: SERTRALINE HYDROCHLORIDE
     Indication: POST-TRAUMATIC STRESS DISORDER
     Dosage: 150.0MG UNKNOWN
     Route: 064
     Dates: start: 20170201
  2. SEROQUEL [Suspect]
     Active Substance: QUETIAPINE FUMARATE
     Indication: POST-TRAUMATIC STRESS DISORDER
     Route: 064

REACTIONS (2)
  - Maternal drugs affecting foetus [None]
  - Death neonatal [Fatal]

NARRATIVE: CASE EVENT DATE: 20171014
